FAERS Safety Report 4788178-1 (Version None)
Quarter: 2005Q4

REPORT INFORMATION
  Report Type: 
  Country: None (occurrence: None)
  Receive Date: 20051004
  Receipt Date: 20051004
  Transmission Date: 20060501
  Serious: Yes (Death, Hospitalization)
  Sender: FDA-Public Use
  Company Number: None

PATIENT
  Sex: Male
  Weight: 41.8 kg

DRUGS (10)
  1. CYCLOPHOSPHAMIDE [Suspect]
     Indication: ACUTE LYMPHOCYTIC LEUKAEMIA
     Dosage: SEE IMAGE
     Dates: start: 20050824, end: 20050824
  2. CYCLOPHOSPHAMIDE [Suspect]
     Indication: ACUTE LYMPHOCYTIC LEUKAEMIA
     Dosage: SEE IMAGE
     Dates: start: 20050729
  3. CYTARABINE [Suspect]
     Dosage: SEE IMAGE
     Dates: start: 20050830, end: 20050904
  4. CYTARABINE [Suspect]
     Dosage: SEE IMAGE
     Dates: start: 20050729
  5. MERCAPTOPURINE [Suspect]
     Dosage: SEE IMAGE
     Dates: start: 20050824, end: 20050906
  6. MERCAPTOPURINE [Suspect]
     Dosage: SEE IMAGE
     Dates: start: 20050729
  7. PEG-L-ASPARAGINASE {-H) [Suspect]
     Dosage: SEE IMAGE
     Dates: start: 20050907, end: 20050907
  8. PEG-L-ASPARAGINASE {-H) [Suspect]
     Dosage: SEE IMAGE
     Dates: start: 20050729
  9. VINCRISTINE SULFATE [Suspect]
     Dosage: SEE IMAGE
     Dates: start: 20050907, end: 20050907
  10. VINCRISTINE SULFATE [Suspect]
     Dosage: SEE IMAGE
     Dates: start: 20050729

REACTIONS (11)
  - BLINDNESS UNILATERAL [None]
  - BRAIN DEATH [None]
  - CAROTID ARTERY OCCLUSION [None]
  - CAROTID ARTERY THROMBOSIS [None]
  - CEREBRAL FUNGAL INFECTION [None]
  - FACIAL PARESIS [None]
  - FEBRILE NEUTROPENIA [None]
  - HEADACHE [None]
  - LOSS OF CONSCIOUSNESS [None]
  - SINUSITIS FUNGAL [None]
  - ZYGOMYCOSIS [None]
